FAERS Safety Report 6097521-5 (Version None)
Quarter: 2009Q1

REPORT INFORMATION
  Report Type: 
  Country: None (occurrence: None)
  Receive Date: 20090227
  Receipt Date: 20080910
  Transmission Date: 20090719
  Serious: No
  Sender: FDA-Public Use
  Company Number: A0747817A

PATIENT
  Sex: Female

DRUGS (1)
  1. IMITREX [Suspect]
     Indication: MIGRAINE
     Route: 065

REACTIONS (5)
  - ABDOMINAL DISCOMFORT [None]
  - ABDOMINAL PAIN UPPER [None]
  - FATIGUE [None]
  - IRRITABLE BOWEL SYNDROME [None]
  - NAUSEA [None]
